FAERS Safety Report 10347296 (Version 3)
Quarter: 2015Q1

REPORT INFORMATION
  Report Type: Spontaneous
  Country: US (occurrence: US)
  Receive Date: 20140729
  Receipt Date: 20150122
  Transmission Date: 20150720
  Serious: No
  Sender: FDA-Public Use
  Company Number: US-PFIZER INC-2014206819

PATIENT
  Age: 32 Year
  Sex: Male
  Weight: 74 kg

DRUGS (2)
  1. ELELYSO [Suspect]
     Active Substance: TALIGLUCERASE ALFA
     Indication: GAUCHER^S DISEASE
     Dosage: 4400 UNITS EVERY 14 DAYS
     Route: 042
     Dates: start: 20140710
  2. ELELYSO [Suspect]
     Active Substance: TALIGLUCERASE ALFA
     Dosage: UNK
     Route: 042

REACTIONS (5)
  - Influenza like illness [Unknown]
  - Headache [Unknown]
  - Flushing [Recovered/Resolved]
  - Fatigue [Unknown]
  - Nausea [Unknown]

NARRATIVE: CASE EVENT DATE: 20140710
